FAERS Safety Report 25761284 (Version 2)
Quarter: 2025Q4

REPORT INFORMATION
  Report Type: Spontaneous
  Country: US (occurrence: US)
  Receive Date: 20250904
  Receipt Date: 20251209
  Transmission Date: 20260117
  Serious: Yes (Hospitalization, Other)
  Sender: BRISTOL-MYERS SQUIBB COMPANY
  Company Number: US-BRISTOL-MYERS SQUIBB COMPANY-2025-121901

PATIENT
  Age: 43 Year
  Sex: Female

DRUGS (2)
  1. IDHIFA [Suspect]
     Active Substance: ENASIDENIB MESYLATE
     Indication: Acute leukaemia
     Route: 048
     Dates: start: 2025
  2. IDHIFA [Suspect]
     Active Substance: ENASIDENIB MESYLATE

REACTIONS (8)
  - Taste disorder [Unknown]
  - Pneumonia [Unknown]
  - Nausea [Not Recovered/Not Resolved]
  - Illness [Unknown]
  - Product use issue [Unknown]
  - Asthenia [Not Recovered/Not Resolved]
  - Feeling jittery [Unknown]
  - Tremor [Unknown]
